FAERS Safety Report 21046235 (Version 2)
Quarter: 2022Q3

REPORT INFORMATION
  Report Type: Spontaneous
  Country: CA (occurrence: CA)
  Receive Date: 20220706
  Receipt Date: 20220920
  Transmission Date: 20221027
  Serious: Yes (Other)
  Sender: FDA-Public Use
  Company Number: CA-BEH-2022147097

PATIENT
  Age: 40 Year
  Sex: Male

DRUGS (1)
  1. HUMAN IMMUNOGLOBULIN G [Suspect]
     Active Substance: HUMAN IMMUNOGLOBULIN G
     Indication: Guillain-Barre syndrome
     Dosage: 2000 MILLIGRAM/KILOGRAM
     Route: 042

REACTIONS (3)
  - Meningitis aseptic [Recovered/Resolved]
  - Headache [Recovered/Resolved]
  - Drug ineffective [Unknown]
